FAERS Safety Report 25656266 (Version 1)
Quarter: 2025Q3

REPORT INFORMATION
  Report Type: Spontaneous
  Country: EU (occurrence: EU)
  Receive Date: 20250807
  Receipt Date: 20250807
  Transmission Date: 20251020
  Serious: Yes (Other)
  Sender: MYLAN
  Company Number: EU-SANDOZ-SDZ2025DE049885

PATIENT
  Age: 56 Year
  Sex: Female

DRUGS (3)
  1. SPIRONOLACTONE [Suspect]
     Active Substance: SPIRONOLACTONE
     Indication: Product used for unknown indication
  2. TORSEMIDE [Suspect]
     Active Substance: TORSEMIDE
     Indication: Fluid retention
  3. TORSEMIDE [Suspect]
     Active Substance: TORSEMIDE
     Dosage: 10 MILLIGRAM, BID (20 MILLIGRAM, QD, 10 MG, BID (EACH MORNING AND EVENING))

REACTIONS (8)
  - Ascites [Recovering/Resolving]
  - Fluid retention [Recovering/Resolving]
  - Oedema peripheral [Unknown]
  - Rash pustular [Unknown]
  - Erythema [Unknown]
  - Pruritus [Unknown]
  - Rash pruritic [Unknown]
  - Product prescribing issue [Unknown]

NARRATIVE: CASE EVENT DATE: 20250615
